FAERS Safety Report 7316393-1 (Version None)
Quarter: 2011Q1

REPORT INFORMATION
  Report Type: 
  Country: None (occurrence: None)
  Receive Date: 20110225
  Receipt Date: 20110216
  Transmission Date: 20110831
  Serious: Yes (Hospitalization)
  Sender: FDA-Public Use
  Company Number: US-ASTRAZENECA-2011SE03007

PATIENT
  Age: 40 Year
  Sex: Female

DRUGS (3)
  1. NEXIUM [Suspect]
     Dosage: BACK ON TWICE A DAY
     Route: 048
  2. NEXIUM [Suspect]
     Indication: ABDOMINAL DISCOMFORT
     Dosage: INCEASED DOSAGE TO TWO TIMES A DAY.
     Route: 048
     Dates: start: 20090101
  3. NEXIUM [Suspect]
     Dosage: ONCE A DAY
     Route: 048

REACTIONS (2)
  - HAEMATEMESIS [None]
  - INFECTION [None]
